FAERS Safety Report 9307836 (Version 1)
Quarter: 2013Q2

REPORT INFORMATION
  Report Type: Report from Study
  Country: HK (occurrence: HK)
  Receive Date: 20130524
  Receipt Date: 20130524
  Transmission Date: 20140414
  Serious: Yes (Hospitalization)
  Sender: FDA-Public Use
  Company Number: HK-BRISTOL-MYERS SQUIBB COMPANY-18930677

PATIENT
  Age: 70 Year
  Sex: Female
  Weight: 57 kg

DRUGS (11)
  1. CETUXIMAB [Suspect]
     Indication: HEAD AND NECK CANCER
     Dates: start: 20130417, end: 20130508
  2. NIFEDIPINE [Concomitant]
     Dates: start: 20060214
  3. METFORMIN [Concomitant]
     Dates: start: 19991215
  4. GLICLAZIDE [Concomitant]
     Dates: start: 19991215
  5. MAGNESIUM [Concomitant]
     Dates: start: 20130416
  6. THYMOL [Concomitant]
     Dates: start: 20130430
  7. CHLORPHENIRAMINE MALEATE [Concomitant]
     Dates: start: 20130430, end: 20130514
  8. ZOPICLONE [Concomitant]
     Dates: start: 20130507, end: 20130514
  9. TRIAMCINOLONE ACETONIDE [Concomitant]
     Dates: start: 20130507, end: 20130514
  10. PARACETAMOL [Concomitant]
     Dates: start: 20130507, end: 20130514
  11. BENZYDAMINE HCL [Concomitant]
     Route: 048
     Dates: start: 20130507, end: 20130514

REACTIONS (1)
  - Dysphagia [Recovered/Resolved]
